FAERS Safety Report 7197191-9 (Version None)
Quarter: 2010Q4

REPORT INFORMATION
  Report Type: 
  Country: None (occurrence: None)
  Receive Date: 20101224
  Receipt Date: 20101213
  Transmission Date: 20110411
  Serious: Yes (Hospitalization)
  Sender: FDA-Public Use
  Company Number: PHHY2010US84798

PATIENT
  Sex: Male
  Weight: 34 kg

DRUGS (1)
  1. EXJADE [Suspect]
     Indication: THALASSAEMIA SICKLE CELL
     Dosage: 625 MG, QD
     Route: 048

REACTIONS (6)
  - CARDIAC FAILURE [None]
  - OEDEMA [None]
  - OSTEOPOROSIS [None]
  - PNEUMONIA [None]
  - PYREXIA [None]
  - TIBIA FRACTURE [None]
